FAERS Safety Report 23486377 (Version 1)
Quarter: 2024Q1

REPORT INFORMATION
  Report Type: Spontaneous
  Country: HR (occurrence: HR)
  Receive Date: 20240206
  Receipt Date: 20240206
  Transmission Date: 20240409
  Serious: Yes (Other)
  Sender: FDA-Public Use
  Company Number: None

PATIENT
  Sex: Male

DRUGS (3)
  1. QUETIAPINE [Suspect]
     Active Substance: QUETIAPINE
     Indication: Product used for unknown indication
     Dosage: HE DRANK 2 QUETIAPINE TABLETS OF AN UNKNOWN DOSE
     Route: 048
     Dates: start: 20231014, end: 20231014
  2. XANAX [Suspect]
     Active Substance: ALPRAZOLAM
     Indication: Product used for unknown indication
     Dosage: HE TOOK ONE XANAX PILL
     Route: 048
     Dates: start: 20231014, end: 20231014
  3. ALPRAZOLAM [Suspect]
     Active Substance: ALPRAZOLAM
     Indication: Product used for unknown indication
     Dosage: HE DRANK ONE TABLET OF HELEX
     Route: 048
     Dates: start: 20231014, end: 20231014

REACTIONS (3)
  - Somnolence [Unknown]
  - Suicide attempt [Unknown]
  - Slow speech [Unknown]

NARRATIVE: CASE EVENT DATE: 20231014
